FAERS Safety Report 25611347 (Version 1)
Quarter: 2025Q3

REPORT INFORMATION
  Report Type: Spontaneous
  Country: US (occurrence: US)
  Receive Date: 20250728
  Receipt Date: 20250728
  Transmission Date: 20251020
  Serious: Yes (Life-Threatening)
  Sender: DR REDDYS
  Company Number: None

PATIENT
  Age: 80 Year
  Sex: Male

DRUGS (2)
  1. AMIODARONE [Suspect]
     Active Substance: AMIODARONE
     Indication: Heart failure with reduced ejection fraction
     Dosage: CHRONIC LOW-DOSE
  2. AMIODARONE [Suspect]
     Active Substance: AMIODARONE
     Indication: Ventricular tachycardia

REACTIONS (6)
  - Decompensated hypothyroidism [Recovering/Resolving]
  - Pulmonary embolism [Recovering/Resolving]
  - Atrioventricular block first degree [Recovering/Resolving]
  - Septic shock [Recovering/Resolving]
  - Cardiogenic shock [Recovering/Resolving]
  - Encephalopathy [Recovering/Resolving]
